FAERS Safety Report 8975693 (Version 2)
Quarter: 2013Q3

REPORT INFORMATION
  Report Type: Report from Study
  Country: CA (occurrence: CA)
  Receive Date: 20121219
  Receipt Date: 20130806
  Transmission Date: 20140515
  Serious: Yes (Other)
  Sender: FDA-Public Use
  Company Number: CA-ROCHE-1168574

PATIENT
  Sex: Male

DRUGS (5)
  1. OMALIZUMAB [Suspect]
     Indication: ASTHMA
     Route: 058
     Dates: start: 20070509
  2. VENTOLINE [Concomitant]
  3. SYMBICORT [Concomitant]
  4. NOVO-HYDRAZIDE [Concomitant]
     Route: 065
  5. NOVO-HYDRAZIDE [Concomitant]
     Dosage: DOSE DOUBLED
     Route: 065

REACTIONS (5)
  - Palpitations [Unknown]
  - Hypersensitivity [Recovered/Resolved]
  - Nasopharyngitis [Unknown]
  - Dizziness [Unknown]
  - Respiratory disorder [Unknown]
